FAERS Safety Report 6309030-6 (Version None)
Quarter: 2009Q3

REPORT INFORMATION
  Report Type: 
  Country: None (occurrence: None)
  Receive Date: 20090814
  Receipt Date: 20090805
  Transmission Date: 20100115
  Serious: Yes (Death)
  Sender: FDA-Public Use
  Company Number: US-BIOGENIDEC-2009BI012204

PATIENT
  Age: 45 Year
  Sex: Male

DRUGS (15)
  1. TYSABRI [Suspect]
     Indication: MULTIPLE SCLEROSIS
     Route: 042
     Dates: start: 20081126, end: 20081126
  2. FLOMAX [Concomitant]
  3. LISINOPRIL [Concomitant]
  4. LYRICA [Concomitant]
  5. ZANAFLEX [Concomitant]
  6. ATIVAN [Concomitant]
     Indication: ANXIETY
  7. PERCOCET [Concomitant]
  8. NEXIUM [Concomitant]
     Route: 048
  9. LORTAB [Concomitant]
     Indication: PAIN IN EXTREMITY
  10. LORTAB [Concomitant]
  11. KLONOPIN [Concomitant]
  12. OXYCONTIN [Concomitant]
     Indication: PAIN IN EXTREMITY
     Route: 048
  13. OXYCONTIN [Concomitant]
     Route: 048
  14. FENTANYL LOLLYPOPS [Concomitant]
     Indication: PAIN IN EXTREMITY
  15. FENTANYL LOLLYPOPS [Concomitant]

REACTIONS (1)
  - OVERDOSE [None]
